FAERS Safety Report 20051770 (Version 1)
Quarter: 2021Q4

REPORT INFORMATION
  Report Type: Spontaneous
  Country: IN (occurrence: IN)
  Receive Date: 20211110
  Receipt Date: 20211110
  Transmission Date: 20220303
  Serious: Yes (Life-Threatening, Hospitalization, Other)
  Sender: FDA-Public Use
  Company Number: IN-LOTUS-2021-LOTUS-048276

PATIENT
  Age: 46 Year
  Sex: Male

DRUGS (1)
  1. METHOTREXATE [Suspect]
     Active Substance: METHOTREXATE
     Indication: Blister
     Route: 048

REACTIONS (13)
  - Pyrexia [Unknown]
  - Skin necrosis [Recovering/Resolving]
  - Papule [Unknown]
  - Dyspnoea [Unknown]
  - Multiple organ dysfunction syndrome [Unknown]
  - Toxicity to various agents [Unknown]
  - Sepsis [Unknown]
  - Acute kidney injury [Unknown]
  - Pancytopenia [Unknown]
  - Pneumonia [Unknown]
  - Mental status changes [Unknown]
  - Mucosal inflammation [Unknown]
  - Overdose [Unknown]
